FAERS Safety Report 9162660 (Version 3)
Quarter: 2013Q2

REPORT INFORMATION
  Report Type: Spontaneous
  Country: US (occurrence: None)
  Receive Date: 20130312
  Receipt Date: 20130419
  Transmission Date: 20140414
  Serious: Yes (Death)
  Sender: FDA-Public Use
  Company Number: 2013SGN00111

PATIENT
  Age: 69 Year
  Sex: Male

DRUGS (2)
  1. ADCETRIS [Suspect]
     Indication: HODGKIN^S DISEASE REFRACTORY
     Dates: start: 20130207
  2. DABIGATRAN [Concomitant]
     Dates: end: 20130207

REACTIONS (3)
  - Cardiac disorder [None]
  - Cardiogenic shock [None]
  - Atrial fibrillation [None]
